FAERS Safety Report 16294494 (Version 1)
Quarter: 2019Q2

REPORT INFORMATION
  Report Type: Spontaneous
  Country: DE (occurrence: DE)
  Receive Date: 20190509
  Receipt Date: 20190509
  Transmission Date: 20190711
  Serious: Yes (Other)
  Sender: FDA-Public Use
  Company Number: DE-TEVA-2019-DE-1047402

PATIENT
  Age: 60 Year
  Sex: Male

DRUGS (1)
  1. CISPLATIN. [Suspect]
     Active Substance: CISPLATIN
     Indication: MIXED ADENONEUROENDOCRINE CARCINOMA
     Route: 042

REACTIONS (4)
  - Neurotoxicity [Recovering/Resolving]
  - Papilloedema [Recovering/Resolving]
  - Disorder of orbit [Recovering/Resolving]
  - Ocular toxicity [Recovering/Resolving]
